FAERS Safety Report 25312593 (Version 2)
Quarter: 2025Q2

REPORT INFORMATION
  Report Type: Spontaneous
  Country: US (occurrence: US)
  Receive Date: 20250514
  Receipt Date: 20250520
  Transmission Date: 20250717
  Serious: Yes (Life-Threatening, Hospitalization, Other)
  Sender: PFIZER
  Company Number: US-PFIZER INC-PV202500055666

PATIENT
  Age: 30 Year
  Sex: Female

DRUGS (1)
  1. DOXYCYCLINE HYCLATE [Suspect]
     Active Substance: DOXYCYCLINE HYCLATE
     Indication: Sinusitis
     Route: 048

REACTIONS (2)
  - Intracranial pressure increased [Recovered/Resolved]
  - Optic nerve disorder [Recovered/Resolved]
